FAERS Safety Report 4462133-3 (Version None)
Quarter: 2004Q3

REPORT INFORMATION
  Report Type: 
  Country: None (occurrence: None)
  Receive Date: 20040927
  Receipt Date: 20040927
  Transmission Date: 20050211
  Serious: No
  Sender: FDA-Public Use
  Company Number: None

PATIENT
  Sex: Female
  Weight: 49.8957 kg

DRUGS (2)
  1. DOXYCYCLINE [Suspect]
     Indication: ACNE
  2. IV ZANTAC [Concomitant]

REACTIONS (1)
  - OESOPHAGEAL ULCER [None]
